FAERS Safety Report 8403442-2 (Version None)
Quarter: 2012Q2

REPORT INFORMATION
  Report Type: 
  Country: None (occurrence: None)
  Receive Date: 20120601
  Receipt Date: 20120524
  Transmission Date: 20120825
  Serious: Yes (Hospitalization)
  Sender: FDA-Public Use
  Company Number: US-JNJFOC-20120520534

PATIENT
  Sex: Male
  Weight: 35.1 kg

DRUGS (10)
  1. PREDNISONE TAB [Concomitant]
  2. MESALAMINE [Concomitant]
     Route: 048
  3. IRON [Concomitant]
  4. PROTONIX [Concomitant]
  5. REMICADE [Suspect]
     Indication: COLITIS ULCERATIVE
     Route: 042
     Dates: start: 20060413
  6. MIRALAX [Concomitant]
  7. CALCIUM CARBONATE [Concomitant]
  8. BETA CAROTENE [Concomitant]
  9. MULTI-VITAMINS [Concomitant]
  10. AZATHIOPRINE [Concomitant]

REACTIONS (2)
  - COLONIC STENOSIS [None]
  - COLITIS ULCERATIVE [None]
